FAERS Safety Report 12864278 (Version 1)
Quarter: 2016Q4

REPORT INFORMATION
  Report Type: Spontaneous
  Country: US (occurrence: US)
  Receive Date: 20161020
  Receipt Date: 20161020
  Transmission Date: 20170207
  Serious: No
  Sender: FDA-Public Use
  Company Number: US-TEVA-678175USA

PATIENT
  Sex: Female

DRUGS (1)
  1. METHOTREXATE. [Suspect]
     Active Substance: METHOTREXATE
     Route: 065

REACTIONS (5)
  - Anxiety [Unknown]
  - Diarrhoea [Unknown]
  - Drug intolerance [Unknown]
  - Depression [Unknown]
  - Drug ineffective [Unknown]
